FAERS Safety Report 9188866 (Version 1)
Quarter: 2013Q1

REPORT INFORMATION
  Report Type: Report from Study
  Country: AT (occurrence: AT)
  Receive Date: 20130326
  Receipt Date: 20130326
  Transmission Date: 20140127
  Serious: Yes (Other)
  Sender: FDA-Public Use
  Company Number: AT-ROCHE-1203219

PATIENT
  Sex: Female

DRUGS (24)
  1. CAPECITABINE [Suspect]
     Indication: BREAST CANCER METASTATIC
     Dosage: 3000 MG/D ABSOLUTE DOSE
     Route: 065
     Dates: start: 20070322, end: 20070404
  2. CAPECITABINE [Suspect]
     Dosage: 3000 MG/D ABSOLUTE DOSE
     Route: 065
     Dates: start: 20070411, end: 20070424
  3. CAPECITABINE [Suspect]
     Dosage: 3000 MG/D ABSOLUTE DOSE
     Route: 065
     Dates: start: 20070502, end: 20070515
  4. CAPECITABINE [Suspect]
     Dosage: 3000 MG/D ABSOLUTE DOSE
     Route: 065
     Dates: start: 20070522, end: 20070604
  5. CAPECITABINE [Suspect]
     Dosage: 3000 MG/D ABSOLUTE DOSE
     Route: 065
     Dates: start: 20070612, end: 20070625
  6. CAPECITABINE [Suspect]
     Dosage: 3000 MG/D ABSOLUTE DOSE
     Route: 065
     Dates: start: 20070712, end: 20070725
  7. CAPECITABINE [Suspect]
     Dosage: 3000 MG/D ABSOLUTE DOSE
     Route: 065
     Dates: start: 20070801, end: 20070814
  8. CAPECITABINE [Suspect]
     Dosage: 3000 MG/D ABSOLUTE DOSE
     Route: 065
     Dates: start: 20070821, end: 20070903
  9. CAPECITABINE [Suspect]
     Dosage: 3000 MG/D ABSOLUTE DOSE
     Route: 065
     Dates: start: 20070911, end: 20070924
  10. CAPECITABINE [Suspect]
     Dosage: 3000 MG/D ABSOLUTE DOSE
     Route: 065
     Dates: start: 20071002, end: 20071015
  11. CAPECITABINE [Suspect]
     Dosage: 3000 MG/D ABSOLUTE DOSE
     Route: 065
     Dates: start: 20071023, end: 20071105
  12. CAPECITABINE [Suspect]
     Dosage: 3000 MG/D ABSOLUTE DOSE
     Route: 065
     Dates: start: 20071112, end: 20071125
  13. TRASTUZUMAB [Suspect]
     Indication: BREAST CANCER METASTATIC
     Route: 065
     Dates: start: 20070322, end: 20070404
  14. TRASTUZUMAB [Suspect]
     Route: 065
     Dates: start: 20070411, end: 20070424
  15. TRASTUZUMAB [Suspect]
     Route: 065
     Dates: start: 20070502, end: 20070515
  16. TRASTUZUMAB [Suspect]
     Route: 065
     Dates: start: 20070522, end: 20070604
  17. TRASTUZUMAB [Suspect]
     Route: 065
     Dates: start: 20070612, end: 20070625
  18. TRASTUZUMAB [Suspect]
     Route: 065
     Dates: start: 20070712, end: 20070725
  19. TRASTUZUMAB [Suspect]
     Route: 065
     Dates: start: 20070801, end: 20070814
  20. TRASTUZUMAB [Suspect]
     Route: 065
     Dates: start: 20070821, end: 20070903
  21. TRASTUZUMAB [Suspect]
     Route: 065
     Dates: start: 20070911, end: 20070924
  22. TRASTUZUMAB [Suspect]
     Route: 065
     Dates: start: 20071002, end: 20071015
  23. TRASTUZUMAB [Suspect]
     Route: 065
     Dates: start: 20071023, end: 20071105
  24. TRASTUZUMAB [Suspect]
     Route: 065
     Dates: start: 20071112, end: 20071125

REACTIONS (1)
  - Knee operation [Unknown]
